FAERS Safety Report 6124447-0 (Version None)
Quarter: 2009Q1

REPORT INFORMATION
  Report Type: 
  Country: None (occurrence: None)
  Receive Date: 20090317
  Receipt Date: 20090317
  Transmission Date: 20090719
  Serious: Yes (Other)
  Sender: FDA-Public Use
  Company Number: None

PATIENT
  Sex: Male
  Weight: 36.9 kg

DRUGS (1)
  1. 131 I-METAIODOBENZYLGUANIDINE [Suspect]
     Indication: NEUROBLASTOMA
     Dosage: 2.5MCI/KG (92MCI) IV X1
     Route: 042
     Dates: start: 20081211

REACTIONS (3)
  - BLOOD BILIRUBIN INCREASED [None]
  - DISEASE PROGRESSION [None]
  - NEUROBLASTOMA [None]
